FAERS Safety Report 15899591 (Version 1)
Quarter: 2019Q1

REPORT INFORMATION
  Report Type: Spontaneous
  Country: US (occurrence: US)
  Receive Date: 20190201
  Receipt Date: 20190201
  Transmission Date: 20190417
  Serious: No
  Sender: FDA-Public Use
  Company Number: US-PFIZER INC-2019035520

PATIENT
  Age: 53 Year
  Sex: Female

DRUGS (1)
  1. LYRICA [Suspect]
     Active Substance: PREGABALIN
     Dosage: UNK
     Dates: end: 201901

REACTIONS (4)
  - Pre-existing condition improved [Unknown]
  - Gastric disorder [Unknown]
  - Therapeutic response unexpected [Unknown]
  - Chest pain [Unknown]

NARRATIVE: CASE EVENT DATE: 201901
